FAERS Safety Report 12007237 (Version 1)
Quarter: 2016Q1

REPORT INFORMATION
  Report Type: Spontaneous
  Country: US (occurrence: US)
  Receive Date: 20160204
  Receipt Date: 20160204
  Transmission Date: 20160526
  Serious: No
  Sender: FDA-Public Use
  Company Number: US-INVAGEN PHARMACEUTICALS, INC.-1047345

PATIENT
  Sex: Female

DRUGS (1)
  1. GABAPENTIN. [Suspect]
     Active Substance: GABAPENTIN
     Route: 048

REACTIONS (6)
  - Abdominal distension [Unknown]
  - Gluten sensitivity [None]
  - Arthralgia [Unknown]
  - Headache [Unknown]
  - Migraine [Unknown]
  - Abdominal pain [Unknown]
